FAERS Safety Report 5487695-9 (Version None)
Quarter: 2007Q4

REPORT INFORMATION
  Report Type: 
  Country: None (occurrence: None)
  Receive Date: 20071015
  Receipt Date: 20071015
  Transmission Date: 20080405
  Serious: No
  Sender: FDA-Public Use
  Company Number: None

PATIENT
  Age: 51 Year
  Sex: Male
  Weight: 104.3273 kg

DRUGS (1)
  1. NEUPRO PATCH 4 MG SCHWATZ PHARMA [Suspect]
     Indication: PARKINSON'S DISEASE
     Dosage: 8 MG  QD  CUTANEOUS
     Route: 003
     Dates: start: 20070821, end: 20071013

REACTIONS (2)
  - DEVICE FAILURE [None]
  - PHARMACEUTICAL PRODUCT COMPLAINT [None]
